FAERS Safety Report 9812344 (Version 2)
Quarter: 2014Q1

REPORT INFORMATION
  Report Type: Spontaneous
  Country: JP (occurrence: JP)
  Receive Date: 20140113
  Receipt Date: 20140122
  Transmission Date: 20141002
  Serious: Yes (Death, Hospitalization)
  Sender: FDA-Public Use
  Company Number: JP-BAXTER-2014BAX000776

PATIENT
  Age: 65 Year
  Sex: Male
  Weight: 53 kg

DRUGS (3)
  1. DIANEAL-N PD-4 1.5 PD SOLUTION [Suspect]
     Indication: DIABETIC NEPHROPATHY
     Route: 033
  2. DIANEAL-N PD-4 1.5 PD SOLUTION [Suspect]
     Indication: RENAL FAILURE CHRONIC
  3. EXTRANEAL PD SOLUTION [Suspect]
     Indication: DIABETIC NEPHROPATHY

REACTIONS (2)
  - Soft tissue necrosis [Fatal]
  - Peripheral arterial occlusive disease [Fatal]
